FAERS Safety Report 7244666-X (Version None)
Quarter: 2011Q1

REPORT INFORMATION
  Report Type: 
  Country: None (occurrence: None)
  Receive Date: 20110125
  Receipt Date: 20101027
  Transmission Date: 20110831
  Serious: No
  Sender: FDA-Public Use
  Company Number: US-MYLANLABS-2010S1019935

PATIENT
  Age: 85 Year
  Sex: Female
  Weight: 46.27 kg

DRUGS (6)
  1. QUINAPRIL [Concomitant]
     Indication: BLOOD PRESSURE INCREASED
     Dosage: FOR YEARS
  2. CLONIDINE [Suspect]
     Indication: BLOOD PRESSURE INCREASED
     Route: 062
     Dates: start: 20101001
  3. DILANTIN [Concomitant]
     Indication: CONVULSION
     Dosage: FOR YEARS
  4. LEVOTHYROXINE SODIUM [Concomitant]
     Indication: HYPOTHYROIDISM
     Dosage: FOR YEARS
  5. OCUVITE /01053801/ [Concomitant]
     Indication: MACULAR DEGENERATION
  6. METOPROLOL [Concomitant]
     Indication: BLOOD PRESSURE INCREASED
     Dosage: FOR YEARS

REACTIONS (2)
  - APPLICATION SITE PRURITUS [None]
  - APPLICATION SITE ERYTHEMA [None]
